FAERS Safety Report 10938950 (Version 2)
Quarter: 2015Q2

REPORT INFORMATION
  Report Type: Spontaneous
  Country: US (occurrence: US)
  Receive Date: 20150321
  Receipt Date: 20150525
  Transmission Date: 20150821
  Serious: No
  Sender: FDA-Public Use
  Company Number: US-JNJFOC-20140107587

PATIENT

DRUGS (5)
  1. TOPIRAMATE. [Suspect]
     Active Substance: TOPIRAMATE
     Indication: ALCOHOLISM
     Dosage: MAXIMUM DAILY DOSE OF 200 MG DAILY
     Route: 048
  2. TOPIRAMATE. [Suspect]
     Active Substance: TOPIRAMATE
     Indication: ALCOHOLISM
     Dosage: MAXIMUM DAILY DOSE OF 200 MG DAILY
     Route: 048
  3. TOPIRAMATE. [Suspect]
     Active Substance: TOPIRAMATE
     Indication: ALCOHOLISM
     Dosage: MAXIMUM DAILY DOSE OF 200 MG DAILY
     Route: 048
  4. TOPIRAMATE. [Suspect]
     Active Substance: TOPIRAMATE
     Indication: ALCOHOLISM
     Dosage: MAXIMUM DAILY DOSE OF 200 MG DAILY
     Route: 048
  5. TOPIRAMATE. [Suspect]
     Active Substance: TOPIRAMATE
     Indication: ALCOHOLISM
     Dosage: MAXIMUM DAILY DOSE OF 200 MG DAILY
     Route: 048

REACTIONS (8)
  - Hypoaesthesia [Unknown]
  - Paraesthesia [Unknown]
  - Disturbance in attention [Unknown]
  - Decreased appetite [Unknown]
  - Product use issue [Unknown]
  - Dysgeusia [Unknown]
  - Weight decreased [Unknown]
  - Memory impairment [Unknown]
